FAERS Safety Report 8913188 (Version 1)
Quarter: 2012Q4

REPORT INFORMATION
  Report Type: 
  Country: IT (occurrence: IT)
  Receive Date: 20121119
  Receipt Date: 20121119
  Transmission Date: 20130627
  Serious: Yes (Hospitalization)
  Sender: FDA-Public Use
  Company Number: IT-SANOFI-AVENTIS-2012SA083489

PATIENT
  Age: 64 Year
  Sex: Female

DRUGS (1)
  1. OXALIPLATIN [Suspect]
     Indication: ADENOCARCINOMA OF COLON
     Route: 041
     Dates: start: 20121107, end: 20121107

REACTIONS (3)
  - Nervous system disorder [Recovered/Resolved]
  - Vertigo [Recovered/Resolved]
  - Arthropathy [Recovered/Resolved]
